FAERS Safety Report 9137061 (Version 1)
Quarter: 2013Q1

REPORT INFORMATION
  Report Type: Spontaneous
  Country: US (occurrence: US)
  Receive Date: 20130219
  Receipt Date: 20130219
  Transmission Date: 20140127
  Serious: No
  Sender: FDA-Public Use
  Company Number: US-BRISTOL-MYERS SQUIBB COMPANY-16791121

PATIENT
  Age: 55 Year
  Sex: Female
  Weight: 77.1 kg

DRUGS (3)
  1. ABATACEPT SUBQ INJECTION 125MG/ML [Suspect]
     Indication: RHEUMATOID ARTHRITIS
     Dosage: LAST INJ-20JUL12,17AUG12?IV ORENCIA STOPPED ON TWO YEARS AGO.NO OF INJ-5?LOT#2A73338,EXP DT:DEC13
     Route: 058
  2. PRISTIQ [Concomitant]
     Indication: DEPRESSION
  3. ESTRADIOL [Concomitant]
     Dosage: 1DF= PILL.FORMULATION-ESTRADIOL PATCH

REACTIONS (7)
  - Diarrhoea [Recovered/Resolved]
  - Feeling abnormal [Unknown]
  - Pain [Unknown]
  - Drug ineffective [Unknown]
  - Malaise [Unknown]
  - Decreased appetite [Unknown]
  - Skin reaction [Unknown]
